FAERS Safety Report 5193180-4 (Version None)
Quarter: 2006Q4

REPORT INFORMATION
  Report Type: 
  Country: None (occurrence: None)
  Receive Date: 20061228
  Receipt Date: 20060620
  Transmission Date: 20070319
  Serious: No
  Sender: FDA-Public Use
  Company Number: US-GLAXOSMITHKLINE-A0609700A

PATIENT
  Age: 61 Year
  Sex: Male

DRUGS (8)
  1. AVODART [Suspect]
     Indication: BENIGN PROSTATIC HYPERPLASIA
     Dosage: .5MG PER DAY
     Route: 048
     Dates: start: 20060606, end: 20060615
  2. WARFARIN SODIUM [Concomitant]
  3. AEROBID [Concomitant]
  4. ALBUTEROL [Concomitant]
  5. SAW PALMETTO [Concomitant]
  6. FOLIC ACID [Concomitant]
  7. UNSPECIFIED MEDICATION [Concomitant]
  8. METAMUCIL [Concomitant]

REACTIONS (1)
  - RECTAL DISCHARGE [None]
